FAERS Safety Report 4548904-3 (Version None)
Quarter: 2004Q4

REPORT INFORMATION
  Report Type: 
  Country: None (occurrence: None)
  Receive Date: 20041227
  Receipt Date: 20041006
  Transmission Date: 20050328
  Serious: No
  Sender: FDA-Public Use
  Company Number: 04P-163-0276261-00

PATIENT
  Age: 60 Year
  Sex: Female
  Weight: 54.4316 kg

DRUGS (6)
  1. HUMIRA [Suspect]
     Indication: RHEUMATOID ARTHRITIS
     Dosage: 40 MG, 1 IN 2 WK, SUBCUTANEOUS
     Route: 058
     Dates: start: 20040501, end: 20040901
  2. HUMIRA [Suspect]
     Indication: SYSTEMIC LUPUS ERYTHEMATOSUS
     Dosage: 40 MG, 1 IN 2 WK, SUBCUTANEOUS
     Route: 058
     Dates: start: 20040501, end: 20040901
  3. HYDROXYCHLOROQUINE PHOSPHATE [Concomitant]
  4. LEVOTHYROXINE SODIUM [Concomitant]
  5. ACETAMINOPHEN [Concomitant]
  6. DIAZEPAM [Concomitant]

REACTIONS (11)
  - CONTUSION [None]
  - DIARRHOEA [None]
  - DRUG INEFFECTIVE [None]
  - DRY SKIN [None]
  - FEELING ABNORMAL [None]
  - HYPOTRICHOSIS [None]
  - IMPAIRED HEALING [None]
  - INFLUENZA LIKE ILLNESS [None]
  - JOINT SWELLING [None]
  - NAIL DISORDER [None]
  - WEIGHT INCREASED [None]
